FAERS Safety Report 8936424 (Version 3)
Quarter: 2012Q4

REPORT INFORMATION
  Report Type: 
  Country: US (occurrence: US)
  Receive Date: 20121130
  Receipt Date: 20121219
  Transmission Date: 20130627
  Serious: Yes (Other)
  Sender: FDA-Public Use
  Company Number: US-ELI_LILLY_AND_COMPANY-US201211006753

PATIENT
  Age: 64 Year
  Sex: Female

DRUGS (5)
  1. CYMBALTA [Suspect]
     Dosage: 120 mg, qd
     Route: 048
  2. PROZAC [Suspect]
     Indication: MAJOR DEPRESSION
     Dosage: 60 mg, qd
     Route: 048
     Dates: start: 1988
  3. SPIRONOLACTONE [Concomitant]
     Indication: ADRENAL DISORDER
     Dosage: 50 mg, qd
     Route: 048
  4. CONCERTA [Concomitant]
     Indication: ATTENTION DEFICIT/HYPERACTIVITY DISORDER
     Dosage: 45 mg, qd
     Route: 048
  5. VALIUM [Concomitant]
     Indication: ANXIETY
     Dosage: 1 DF, prn
     Route: 048

REACTIONS (4)
  - Dermatitis bullous [Unknown]
  - Deformity [Unknown]
  - Blood blister [Unknown]
  - Acne [Unknown]
